FAERS Safety Report 19744535 (Version 1)
Quarter: 2021Q3

REPORT INFORMATION
  Report Type: Spontaneous
  Country: US (occurrence: US)
  Receive Date: 20210821
  Receipt Date: 20210821
  Transmission Date: 20211014
  Serious: No
  Sender: FDA-Public Use
  Company Number: None

PATIENT
  Age: 64 Year
  Sex: Male

DRUGS (1)
  1. ABIRATERONE TAB 250NG [Suspect]
     Active Substance: ABIRATERONE
     Route: 048
     Dates: start: 20210428

REACTIONS (3)
  - Peripheral swelling [None]
  - Joint swelling [None]
  - Oedema [None]

NARRATIVE: CASE EVENT DATE: 20210819
